FAERS Safety Report 8963144 (Version 1)
Quarter: 2012Q4

REPORT INFORMATION
  Report Type: 
  Country: US (occurrence: US)
  Receive Date: 20121213
  Receipt Date: 20121213
  Transmission Date: 20130627
  Serious: No
  Sender: FDA-Public Use
  Company Number: US-PFIZER INC-2012313614

PATIENT
  Sex: Male

DRUGS (2)
  1. LYRICA [Suspect]
     Dosage: 50 mg, 1x/day
     Route: 048
     Dates: start: 201212, end: 201212
  2. TEKTURNA [Concomitant]
     Indication: HYPERTENSION
     Dosage: 300 mg, 1x/day

REACTIONS (3)
  - Rash [Not Recovered/Not Resolved]
  - Oedema peripheral [Not Recovered/Not Resolved]
  - Rash generalised [Not Recovered/Not Resolved]
